FAERS Safety Report 10256144 (Version 1)
Quarter: 2014Q2

REPORT INFORMATION
  Report Type: Spontaneous
  Country: US (occurrence: US)
  Receive Date: 20140624
  Receipt Date: 20140624
  Transmission Date: 20141212
  Serious: No
  Sender: FDA-Public Use
  Company Number: US-GILEAD-2014-0106518

PATIENT
  Sex: Female

DRUGS (12)
  1. LETAIRIS [Suspect]
     Indication: PULMONARY HYPERTENSION
     Dosage: 5 MG, QD
     Route: 065
     Dates: start: 20140530, end: 20140606
  2. NIFEDICAL [Concomitant]
  3. ADVAIR [Concomitant]
  4. NEXIUM                             /01479302/ [Concomitant]
  5. XANAX [Concomitant]
  6. HYDROCODONE/APAP [Concomitant]
  7. DIFLUCAN [Concomitant]
  8. LOMOTIL                            /00034001/ [Concomitant]
  9. ALLOPURINOL [Concomitant]
  10. PROMETHAZINE [Concomitant]
  11. LISINOPRIL [Concomitant]
  12. ZOLOFT [Concomitant]

REACTIONS (3)
  - Pyrexia [Recovered/Resolved]
  - Oedema peripheral [Recovering/Resolving]
  - Fatigue [Not Recovered/Not Resolved]
